FAERS Safety Report 22958708 (Version 2)
Quarter: 2024Q1

REPORT INFORMATION
  Report Type: Spontaneous
  Country: IN (occurrence: IN)
  Receive Date: 20230919
  Receipt Date: 20240216
  Transmission Date: 20240409
  Serious: Yes (Hospitalization)
  Sender: FDA-Public Use
  Company Number: IN-SUN PHARMACEUTICAL INDUSTRIES LTD-2023R1-408300

PATIENT
  Age: 45 Year
  Sex: Female

DRUGS (4)
  1. DULOXETINE [Suspect]
     Active Substance: DULOXETINE
     Indication: Depression
     Dosage: 20 MILLIGRAM, QD
     Route: 065
  2. NEVIRAPINE [Concomitant]
     Active Substance: NEVIRAPINE
     Indication: Antiretroviral therapy
     Dosage: 200 MILLIGRAM
     Route: 065
  3. ZIDOVUDINE [Concomitant]
     Active Substance: ZIDOVUDINE
     Indication: Antiretroviral therapy
     Dosage: 300 MILLIGRAM
     Route: 065
  4. LAMIVUDINE [Concomitant]
     Active Substance: LAMIVUDINE
     Indication: Antiretroviral therapy
     Dosage: 150 MILLIGRAM, BID
     Route: 065

REACTIONS (1)
  - Paraesthesia [Recovered/Resolved]
